FAERS Safety Report 22323772 (Version 1)
Quarter: 2023Q2

REPORT INFORMATION
  Report Type: Report from Study
  Country: EG (occurrence: EG)
  Receive Date: 20230516
  Receipt Date: 20230516
  Transmission Date: 20230722
  Serious: Yes (Hospitalization, Other)
  Sender: FDA-Public Use
  Company Number: EG-002147023-NVSC2023EG109901

PATIENT
  Sex: Female

DRUGS (3)
  1. GILENYA [Suspect]
     Active Substance: FINGOLIMOD HYDROCHLORIDE
     Indication: Multiple sclerosis
     Dosage: 0.5 MG, QD (DOCTOR ASKED TO TAKE ONE CAP EACH OTHER DAY)
     Route: 048
     Dates: start: 2019, end: 2020
  2. EZOGAST [Concomitant]
     Indication: Abdominal pain upper
     Dosage: 1 DOSAGE FORM, QD (MORNING BEFORE BREAKFAST)
     Route: 065
     Dates: start: 20230315
  3. LIVABION [Concomitant]
     Indication: Vitamin supplementation
     Dosage: ONE AMPOULE, QW
     Route: 065
     Dates: start: 20230315

REACTIONS (13)
  - Multiple sclerosis [Recovered/Resolved]
  - Discomfort [Recovered/Resolved]
  - Dizziness [Not Recovered/Not Resolved]
  - White blood cell count decreased [Unknown]
  - Multiple sclerosis [Recovered/Resolved]
  - Muscular weakness [Not Recovered/Not Resolved]
  - Dysarthria [Recovered/Resolved]
  - Mastication disorder [Recovered/Resolved]
  - Hallucination [Recovered/Resolved]
  - Vision blurred [Not Recovered/Not Resolved]
  - Maternal exposure during pregnancy [Unknown]
  - Normal newborn [Unknown]
  - Off label use [Unknown]

NARRATIVE: CASE EVENT DATE: 20190101
